FAERS Safety Report 25922409 (Version 1)
Quarter: 2025Q4

REPORT INFORMATION
  Report Type: Report from Study
  Country: CA (occurrence: CA)
  Receive Date: 20251015
  Receipt Date: 20251015
  Transmission Date: 20260117
  Serious: Yes (Hospitalization)
  Sender: ALEXION PHARMACEUTICALS
  Company Number: CA-AstraZeneca-CH-00967851A

PATIENT
  Age: 56 Year
  Sex: Female

DRUGS (2)
  1. ANIFROLUMAB [Suspect]
     Active Substance: ANIFROLUMAB
     Indication: Autoantibody positive
     Route: 065
     Dates: start: 20240325
  2. ANIFROLUMAB [Suspect]
     Active Substance: ANIFROLUMAB
     Indication: Systemic lupus erythematosus

REACTIONS (2)
  - Stoma site haemorrhage [Recovered/Resolved]
  - Ulcer [Unknown]

NARRATIVE: CASE EVENT DATE: 20251002
